FAERS Safety Report 13759589 (Version 2)
Quarter: 2017Q4

REPORT INFORMATION
  Report Type: Spontaneous
  Country: US (occurrence: US)
  Receive Date: 20170717
  Receipt Date: 20171013
  Transmission Date: 20180320
  Serious: No
  Sender: FDA-Public Use
  Company Number: US-SHIRE-US201714587

PATIENT
  Sex: Male

DRUGS (1)
  1. ELAPRASE [Suspect]
     Active Substance: IDURSULFASE
     Indication: HEREDITARY ANGIOEDEMA
     Dosage: 36 MG, 1X/WEEK
     Route: 042
     Dates: start: 20151026

REACTIONS (1)
  - Device issue [Unknown]
